FAERS Safety Report 12405842 (Version 2)
Quarter: 2016Q2

REPORT INFORMATION
  Report Type: Spontaneous
  Country: US (occurrence: US)
  Receive Date: 20160526
  Receipt Date: 20160608
  Transmission Date: 20160815
  Serious: No
  Sender: FDA-Public Use
  Company Number: US-BIOGEN-2016BI00229671

PATIENT
  Sex: Female

DRUGS (2)
  1. TECFIDERA [Suspect]
     Active Substance: DIMETHYL FUMARATE
     Indication: MULTIPLE SCLEROSIS
     Route: 065
     Dates: end: 20160411
  2. TECFIDERA [Suspect]
     Active Substance: DIMETHYL FUMARATE
     Dates: start: 20130711, end: 20130807

REACTIONS (7)
  - Anger [Unknown]
  - Swelling [Recovered/Resolved]
  - Asthenia [Unknown]
  - Depressed mood [Unknown]
  - Malaise [Unknown]
  - Fatigue [Unknown]
  - Weight increased [Recovered/Resolved]
